FAERS Safety Report 19962064 (Version 3)
Quarter: 2021Q4

REPORT INFORMATION
  Report Type: Spontaneous
  Country: US (occurrence: US)
  Receive Date: 20211018
  Receipt Date: 20211118
  Transmission Date: 20220303
  Serious: Yes (Hospitalization, Other)
  Sender: FDA-Public Use
  Company Number: US-CIPLA LTD.-2021US06787

PATIENT

DRUGS (4)
  1. METOPROLOL [Interacting]
     Active Substance: METOPROLOL
     Indication: Atrial fibrillation
     Dosage: UNK
     Route: 065
  2. PIPER BETLE LEAF [Interacting]
     Active Substance: PIPER BETLE LEAF
     Indication: Product used for unknown indication
     Dosage: UNK
     Route: 048
  3. VERAPAMIL [Interacting]
     Active Substance: VERAPAMIL HYDROCHLORIDE
     Indication: Atrial fibrillation
     Dosage: 240 MILLIGRAM, 12 HRS
     Route: 048
  4. SPIRONOLACTONE [Concomitant]
     Active Substance: SPIRONOLACTONE
     Indication: Product used for unknown indication
     Dosage: 50 MILLIGRAM, 24 HOURS
     Route: 048

REACTIONS (4)
  - Herbal interaction [Recovered/Resolved]
  - Bradycardia [Recovered/Resolved]
  - Hypotension [Recovered/Resolved]
  - Presyncope [Recovered/Resolved]
